FAERS Safety Report 8123721-6 (Version None)
Quarter: 2012Q1

REPORT INFORMATION
  Report Type: 
  Country: None (occurrence: None)
  Receive Date: 20120208
  Receipt Date: 20120130
  Transmission Date: 20120608
  Serious: Yes (Other)
  Sender: FDA-Public Use
  Company Number: US-ASTRAZENECA-2012SE05387

PATIENT
  Sex: Male

DRUGS (18)
  1. SOMA [Concomitant]
  2. NEXIUM [Suspect]
     Indication: HIATUS HERNIA
     Route: 048
  3. ATENOLOL [Concomitant]
  4. FOLIC ACID [Concomitant]
  5. FLOMAX [Concomitant]
  6. ADVAIR DISKUS 100/50 [Concomitant]
     Route: 055
  7. LISINOPRIL [Concomitant]
  8. NORCO [Concomitant]
  9. PROSERA [Concomitant]
  10. UVAR [Concomitant]
     Route: 055
  11. AEROSOL INHALER [Concomitant]
     Dosage: 005% 2.5 ML
  12. TWOBAR [Concomitant]
     Dosage: 80 MG BID BUT TAKING ONLY ONCE A DAY
  13. BETAMETHASONE HFA [Concomitant]
     Route: 055
  14. HYDROCODONE [Concomitant]
     Dosage: 7.5/325 MG
  15. ELAVIL [Concomitant]
  16. MYOSOLINE [Concomitant]
  17. LATANOPROST [Concomitant]
     Indication: GLAUCOMA
  18. XALAPAN (GENERIC FORM) [Concomitant]

REACTIONS (4)
  - OSTEOPOROSIS [None]
  - GLAUCOMA [None]
  - LIVER DISORDER [None]
  - OFF LABEL USE [None]
